FAERS Safety Report 9629486 (Version 2)
Quarter: 2013Q4

REPORT INFORMATION
  Report Type: Spontaneous
  Country: IT (occurrence: IT)
  Receive Date: 20131017
  Receipt Date: 20131107
  Transmission Date: 20140711
  Serious: Yes (Life-Threatening, Hospitalization, Other)
  Sender: FDA-Public Use
  Company Number: IT-ASTRAZENECA-2013SE75853

PATIENT
  Age: 22929 Day
  Sex: Female

DRUGS (2)
  1. SEROQUEL [Suspect]
     Indication: MAJOR DEPRESSION
     Route: 048
     Dates: start: 20131002, end: 20131002
  2. TAVOR [Concomitant]
     Indication: INSOMNIA
     Route: 048

REACTIONS (2)
  - Coma [Unknown]
  - Drug abuse [Unknown]
